FAERS Safety Report 13427858 (Version 1)
Quarter: 2017Q2

REPORT INFORMATION
  Report Type: Spontaneous
  Country: AU (occurrence: AU)
  Receive Date: 20170411
  Receipt Date: 20170411
  Transmission Date: 20170830
  Serious: Yes (Hospitalization, Congenital Anomaly, Other)
  Sender: FDA-Public Use
  Company Number: AU-ENDO PHARMACEUTICALS INC-2017-001709

PATIENT
  Sex: Female

DRUGS (8)
  1. PIMOZIDE. [Suspect]
     Active Substance: PIMOZIDE
     Indication: PRODUCT USED FOR UNKNOWN INDICATION
     Dosage: UNK UNK, UNKNOWN
     Route: 064
  2. PIMOZIDE. [Suspect]
     Active Substance: PIMOZIDE
     Dosage: UNK UNK, UNKNOWN
     Route: 063
  3. ALPRAZOLAM TABLETS [Suspect]
     Active Substance: ALPRAZOLAM
     Indication: PRODUCT USED FOR UNKNOWN INDICATION
     Dosage: UNK UNK, UNKNOWN
     Route: 064
  4. DIAZEPAM TABLETS [Suspect]
     Active Substance: DIAZEPAM
     Indication: PRODUCT USED FOR UNKNOWN INDICATION
     Dosage: UNK UNK, UNKNOWN
     Route: 064
  5. ALPRAZOLAM TABLETS [Suspect]
     Active Substance: ALPRAZOLAM
     Dosage: UNK UNK, UNKNOWN
     Route: 063
  6. TRANYLCYPROMINE [Suspect]
     Active Substance: TRANYLCYPROMINE
     Dosage: UNK UNK, UNKNOWN
     Route: 063
  7. TRANYLCYPROMINE [Suspect]
     Active Substance: TRANYLCYPROMINE
     Indication: PRODUCT USED FOR UNKNOWN INDICATION
     Dosage: UNK UNK, UNKNOWN
     Route: 064
  8. DIAZEPAM TABLETS [Suspect]
     Active Substance: DIAZEPAM
     Dosage: UNK UNK, UNKNOWN
     Route: 063

REACTIONS (15)
  - Foetal growth restriction [Unknown]
  - Foetal exposure during pregnancy [Unknown]
  - Feeding intolerance [Recovered/Resolved]
  - Brain herniation [Unknown]
  - Deafness neurosensory [Unknown]
  - Skin discolouration [Unknown]
  - Patent ductus arteriosus [Unknown]
  - Abdominal distension [Recovered/Resolved]
  - Dysmorphism [Unknown]
  - Congenital central nervous system anomaly [Unknown]
  - Exposure during breast feeding [Unknown]
  - Arnold-Chiari malformation [Unknown]
  - Craniosynostosis [Unknown]
  - Atrioventricular septal defect [Unknown]
  - Superficial vein prominence [Unknown]
